FAERS Safety Report 5778366-X (Version None)
Quarter: 2008Q2

REPORT INFORMATION
  Report Type: 
  Country: None (occurrence: None)
  Receive Date: 20080619
  Receipt Date: 20080613
  Transmission Date: 20081010
  Serious: Yes (Death, Other)
  Sender: FDA-Public Use
  Company Number: US-WYE-H03494808

PATIENT
  Sex: Female
  Weight: 158.9 kg

DRUGS (9)
  1. EFFEXOR XR [Suspect]
     Indication: MAJOR DEPRESSION
     Dosage: OVERDOSE AMOUNT 1650 MG
     Route: 048
     Dates: start: 20080301, end: 20080301
  2. WELLBUTRIN [Suspect]
     Indication: DEPRESSION
     Dates: start: 20080101, end: 20080301
  3. LEVOTHYROXINE SODIUM [Concomitant]
     Indication: HYPOTHYROIDISM
  4. TRAZODONE HCL [Concomitant]
  5. GLIMEPIRIDE [Concomitant]
  6. DICLOFENAC [Concomitant]
  7. PROGESTERONE [Concomitant]
     Dosage: UNKNOWN
  8. AMBIEN [Suspect]
     Indication: INSOMNIA
     Dosage: OVERDOSE AMOUNT 4 PILLS
     Dates: start: 20080301, end: 20080301
  9. LISINOPRIL [Concomitant]
     Indication: HYPERTENSION

REACTIONS (6)
  - DEPRESSION [None]
  - FATIGUE [None]
  - INTENTIONAL OVERDOSE [None]
  - IRRITABILITY [None]
  - PSYCHIATRIC SYMPTOM [None]
  - STRESS [None]
